FAERS Safety Report 8507332-6 (Version None)
Quarter: 2012Q3

REPORT INFORMATION
  Report Type: 
  Country: None (occurrence: None)
  Receive Date: 20120712
  Receipt Date: 20120703
  Transmission Date: 20120928
  Serious: Yes (Hospitalization, Other)
  Sender: FDA-Public Use
  Company Number: JP-BAXTER-2012BAX007419

PATIENT
  Sex: Male
  Weight: 10.3 kg

DRUGS (9)
  1. ADVATE [Suspect]
     Route: 042
     Dates: start: 20120424, end: 20120424
  2. ADVATE [Suspect]
     Route: 042
     Dates: start: 20120515, end: 20120515
  3. ADVATE [Suspect]
     Route: 042
     Dates: start: 20120427, end: 20120503
  4. ADVATE [Suspect]
     Route: 042
     Dates: start: 20120319, end: 20120423
  5. DIPHTHERIA, TETANU AND PERTUSSIS ADSORBED VA [Concomitant]
     Route: 058
     Dates: start: 20120220, end: 20120220
  6. ADVATE [Suspect]
     Route: 042
     Dates: start: 20120517, end: 20120518
  7. DIPHTHERIA, TETANU AND PERTUSSIS ADSORBED VA [Concomitant]
     Route: 058
     Dates: start: 20120317, end: 20120317
  8. ADVATE [Suspect]
     Route: 042
     Dates: start: 20120507, end: 20120507
  9. LIVE POLIOMYELITIS VACCINE [Concomitant]
     Route: 048
     Dates: start: 20120413, end: 20120413

REACTIONS (5)
  - PYREXIA [None]
  - FATIGUE [None]
  - FACTOR VIII INHIBITION [None]
  - INFECTION [None]
  - HYPOPHAGIA [None]
